FAERS Safety Report 19252357 (Version 1)
Quarter: 2021Q2

REPORT INFORMATION
  Report Type: Spontaneous
  Country: JP (occurrence: JP)
  Receive Date: 20210512
  Receipt Date: 20210512
  Transmission Date: 20210717
  Serious: Yes (Hospitalization)
  Sender: FDA-Public Use
  Company Number: JP-SAKK-2021SA155837AA

PATIENT
  Sex: Male

DRUGS (1)
  1. KEVZARA [Suspect]
     Active Substance: SARILUMAB
     Indication: RHEUMATIC DISORDER
     Dosage: UNK
     Route: 058
     Dates: start: 20210314, end: 20210505

REACTIONS (1)
  - Bladder disorder [Recovering/Resolving]

NARRATIVE: CASE EVENT DATE: 20210507
